FAERS Safety Report 5825737-9 (Version None)
Quarter: 2008Q3

REPORT INFORMATION
  Report Type: 
  Country: None (occurrence: None)
  Receive Date: 20080729
  Receipt Date: 20080723
  Transmission Date: 20090109
  Serious: Yes (Hospitalization)
  Sender: FDA-Public Use
  Company Number: DE-MERCK-0807DEU00081

PATIENT
  Sex: Female

DRUGS (2)
  1. INVANZ [Suspect]
     Indication: PNEUMONIA
     Route: 042
     Dates: start: 20080401, end: 20080401
  2. GENTAMICIN [Concomitant]
     Route: 065
     Dates: start: 20080401, end: 20080401

REACTIONS (13)
  - ABASIA [None]
  - ALOPECIA [None]
  - DERMATITIS ALLERGIC [None]
  - DIARRHOEA [None]
  - EATING DISORDER [None]
  - GLOSSODYNIA [None]
  - HYPOAESTHESIA ORAL [None]
  - ORAL INFECTION [None]
  - RASH VESICULAR [None]
  - SKIN BURNING SENSATION [None]
  - SKIN DISCOLOURATION [None]
  - SKIN EXFOLIATION [None]
  - SKIN WRINKLING [None]
